FAERS Safety Report 21727160 (Version 6)
Quarter: 2023Q2

REPORT INFORMATION
  Report Type: Report from Study
  Country: CA (occurrence: CA)
  Receive Date: 20221214
  Receipt Date: 20230628
  Transmission Date: 20230721
  Serious: Yes (Other)
  Sender: FDA-Public Use
  Company Number: CA-AKCEA THERAPEUTICS, INC.-2022IS004415

PATIENT

DRUGS (10)
  1. TEGSEDI [Suspect]
     Active Substance: INOTERSEN SODIUM
     Indication: Hereditary neuropathic amyloidosis
     Dosage: 284 MILLIGRAM, QW
     Route: 058
  2. TEGSEDI [Suspect]
     Active Substance: INOTERSEN SODIUM
     Dosage: 284 MILLIGRAM, QOW
     Route: 058
     Dates: start: 20200617
  3. AVENTYL [Concomitant]
     Active Substance: NORTRIPTYLINE HYDROCHLORIDE
     Indication: Neuropathy peripheral
     Dosage: 10 MILLIGRAM, QD
     Route: 048
     Dates: start: 202011
  4. ALBUTEROL [Concomitant]
     Active Substance: ALBUTEROL
     Indication: Product used for unknown indication
     Dosage: UNK
  5. VENTOLIN [Concomitant]
     Active Substance: ALBUTEROL SULFATE
     Indication: Product used for unknown indication
     Dosage: UNK
  6. FUROSEMIDE [Concomitant]
     Active Substance: FUROSEMIDE
     Indication: Diuretic therapy
     Dosage: UNK
     Route: 065
  7. TAFAMIDIS [Concomitant]
     Active Substance: TAFAMIDIS
     Indication: Cardiomyopathy
     Dosage: UNK
     Route: 048
     Dates: end: 20200606
  8. LASIX [Concomitant]
     Active Substance: FUROSEMIDE
     Indication: Product used for unknown indication
     Dosage: 20-30 MG
     Route: 065
  9. LASIX [Concomitant]
     Active Substance: FUROSEMIDE
     Dosage: 20-40 MG
     Route: 065
  10. VAGISIL [BENZOCAINE] [Concomitant]
     Indication: Product used for unknown indication
     Dosage: UNK
     Route: 067

REACTIONS (38)
  - Renal impairment [Not Recovered/Not Resolved]
  - Cardiac failure congestive [Not Recovered/Not Resolved]
  - Pulmonary oedema [Not Recovered/Not Resolved]
  - Lymphocyte count decreased [Not Recovered/Not Resolved]
  - Protein urine present [Unknown]
  - Creatinine urine abnormal [Not Recovered/Not Resolved]
  - Urine protein/creatinine ratio increased [Unknown]
  - Blood urea increased [Not Recovered/Not Resolved]
  - Proteinuria [Recovered/Resolved]
  - Mean cell volume increased [Not Recovered/Not Resolved]
  - Platelet count decreased [Not Recovered/Not Resolved]
  - Glomerular filtration rate decreased [Recovered/Resolved]
  - Protein total decreased [Unknown]
  - Mean cell haemoglobin increased [Recovered/Resolved]
  - Urine albumin/creatinine ratio increased [Recovered/Resolved]
  - Pain in extremity [Not Recovered/Not Resolved]
  - Swelling [Not Recovered/Not Resolved]
  - Nausea [Not Recovered/Not Resolved]
  - Fatigue [Not Recovered/Not Resolved]
  - Decreased appetite [Not Recovered/Not Resolved]
  - Cataract [Not Recovered/Not Resolved]
  - Bladder disorder [Not Recovered/Not Resolved]
  - Haemorrhoids [Not Recovered/Not Resolved]
  - Cough [Not Recovered/Not Resolved]
  - Decubitus ulcer [Not Recovered/Not Resolved]
  - Blood potassium decreased [Unknown]
  - Brain natriuretic peptide increased [Unknown]
  - Blood creatinine increased [Recovered/Resolved]
  - Neuralgia [Not Recovered/Not Resolved]
  - Drug intolerance [Not Recovered/Not Resolved]
  - Malaise [Not Recovered/Not Resolved]
  - General physical health deterioration [Not Recovered/Not Resolved]
  - Fluid retention [Not Recovered/Not Resolved]
  - Ejection fraction abnormal [Not Recovered/Not Resolved]
  - Dyspnoea [Not Recovered/Not Resolved]
  - Peripheral swelling [Not Recovered/Not Resolved]
  - Sleep disorder [Not Recovered/Not Resolved]
  - White blood cell count decreased [Not Recovered/Not Resolved]

NARRATIVE: CASE EVENT DATE: 20221201
